FAERS Safety Report 10408975 (Version 1)
Quarter: 2014Q3

REPORT INFORMATION
  Report Type: Spontaneous
  Country: US (occurrence: None)
  Receive Date: 20140825
  Receipt Date: 20140825
  Transmission Date: 20150326
  Serious: No
  Sender: FDA-Public Use
  Company Number: None

PATIENT
  Age: 52 Year
  Sex: Male

DRUGS (1)
  1. ENBREL [Suspect]
     Active Substance: ETANERCEPT
     Dosage: 50 MG QW SQ
     Route: 058
     Dates: start: 20130710, end: 20130720

REACTIONS (3)
  - Peripheral swelling [None]
  - Pruritus [None]
  - Joint swelling [None]

NARRATIVE: CASE EVENT DATE: 20140721
